FAERS Safety Report 25343221 (Version 4)
Quarter: 2025Q3

REPORT INFORMATION
  Report Type: Spontaneous
  Country: US (occurrence: US)
  Receive Date: 20250521
  Receipt Date: 20250708
  Transmission Date: 20251020
  Serious: No
  Sender: PFIZER
  Company Number: US-PFIZER INC-202500102497

PATIENT
  Age: 11 Year
  Sex: Male
  Weight: 27.22 kg

DRUGS (1)
  1. GENOTROPIN [Suspect]
     Active Substance: SOMATROPIN
     Indication: Growth disorder
     Dosage: 1 MG, DAILY ADMINISTERED IN DIFFERENT SPOTS THIGHS, BUTTOCKS AND STOMACH

REACTIONS (3)
  - Device defective [Unknown]
  - Device power source issue [Unknown]
  - Device use issue [Unknown]
